FAERS Safety Report 10345476 (Version 1)
Quarter: 2014Q3

REPORT INFORMATION
  Report Type: Spontaneous
  Country: AU (occurrence: None)
  Receive Date: 20140723
  Receipt Date: 20140723
  Transmission Date: 20150326
  Serious: Yes (Hospitalization)
  Sender: FDA-Public Use
  Company Number: 2014AU010534

PATIENT
  Age: 18 Year
  Sex: Male

DRUGS (14)
  1. IFOSFAMIDE (IFOSFAMIDE) [Suspect]
     Active Substance: IFOSFAMIDE
     Indication: PERIPHERAL NERVE SHEATH TUMOUR MALIGNANT
     Dosage: 3312 MG, UNK, INTRAVENOUS
     Route: 042
     Dates: start: 20140225
  2. METOCLOPRAMIDE HYDORCHLORIDE (METOCLOPRAMIDE HYDROCHLORIDE) [Concomitant]
  3. MESNA. [Suspect]
     Active Substance: MESNA
     Indication: PERIPHERAL NERVE SHEATH TUMOUR MALIGNANT
     Dosage: 662 MG, UNK, INTRAVENOUS?
     Route: 042
     Dates: start: 20140225
  4. PANTOPRAZOLE (PANTOPRAZOLE) [Concomitant]
     Active Substance: PANTOPRAZOLE SODIUM
  5. DEXAMETHASONE. [Suspect]
     Active Substance: DEXAMETHASONE
     Indication: PROPHYLAXIS OF NAUSEA AND VOMITING
     Route: 048
     Dates: start: 20140225
  6. FRUSEMIDE (FUROSEMIDE) [Concomitant]
     Active Substance: FUROSEMIDE
  7. OXYCONTIN [Concomitant]
     Active Substance: OXYCODONE HYDROCHLORIDE
  8. PEGFILGRASTIM [Suspect]
     Active Substance: PEGFILGRASTIM
     Indication: PERIPHERAL NERVE SHEATH TUMOUR MALIGNANT
     Dosage: 6 MG, UNK, SUBCUTANEOUS?
     Route: 058
  9. ETOPOSIDE. [Suspect]
     Active Substance: ETOPOSIDE
     Indication: PERIPHERAL NERVE SHEATH TUMOUR MALIGNANT
     Dosage: 180 MG, UNK, INTRAVENOUS?
     Route: 042
     Dates: start: 20140225
  10. HYDROMORPHONE HYDORCHLORIDE (HYDROMORPHONE HYDORCHLORIDE) [Concomitant]
  11. PARACETAMOL (PARACETAMOL) [Concomitant]
     Active Substance: ACETAMINOPHEN
  12. PREGABALIN (PREGABALIN) [Concomitant]
     Active Substance: PREGABALIN
  13. ALOXI [Suspect]
     Active Substance: PALONOSETRON HYDROCHLORIDE
     Indication: PROPHYLAXIS OF NAUSEA AND VOMITING
     Dosage: 0.3 MG, UNK, INTRAVENOUS?
     Route: 042
     Dates: start: 20140225
  14. DOCUSATE SODIUM W/SENNA (DOCUSATE SODIUM, SENNA ALEXANDRINA) [Concomitant]

REACTIONS (14)
  - Peripheral nerve sheath tumour malignant [None]
  - Encephalopathy [None]
  - Toxicity to various agents [None]
  - Asterixis [None]
  - Back pain [None]
  - Oxygen saturation decreased [None]
  - Heart rate increased [None]
  - Somnolence [None]
  - Coma scale abnormal [None]
  - Blood pressure increased [None]
  - Agitation [None]
  - Confusional state [None]
  - Malignant neoplasm progression [None]
  - Tachypnoea [None]

NARRATIVE: CASE EVENT DATE: 20140226
